FAERS Safety Report 15490965 (Version 1)
Quarter: 2018Q4

REPORT INFORMATION
  Report Type: Spontaneous
  Country: SE (occurrence: SE)
  Receive Date: 20181012
  Receipt Date: 20181012
  Transmission Date: 20190205
  Serious: Yes (Death, Hospitalization, Disabling)
  Sender: FDA-Public Use
  Company Number: SE-TEVA-2018-SE-963460

PATIENT
  Age: 79 Year
  Sex: Female

DRUGS (9)
  1. ZOLEDRONIC ACID (ANHYDROUS) [Suspect]
     Active Substance: ZOLEDRONIC ACID ANHYDROUS
     Indication: OSTEOPOROSIS
     Route: 042
     Dates: start: 201806, end: 201806
  2. ALVEDON FORTE [Concomitant]
     Route: 065
  3. FELODIPINE. [Concomitant]
     Active Substance: FELODIPINE
     Route: 065
  4. KALCIPOS-D [Concomitant]
     Active Substance: CALCIUM CARBONATE\CHOLECALCIFEROL
     Route: 065
  5. JANUVIA [Concomitant]
     Active Substance: SITAGLIPTIN PHOSPHATE
     Route: 065
  6. NOVOMIX [Concomitant]
     Active Substance: INSULIN ASPART
     Route: 065
  7. FORXIGA [Concomitant]
     Active Substance: DAPAGLIFLOZIN
     Route: 065
  8. OXYCODONE [Concomitant]
     Active Substance: OXYCODONE
     Route: 065
  9. ACETYLSALICYLIC ACID [Concomitant]
     Active Substance: ASPIRIN
     Route: 065

REACTIONS (1)
  - Acute kidney injury [Fatal]

NARRATIVE: CASE EVENT DATE: 20180611
